FAERS Safety Report 9129963 (Version 1)
Quarter: 2013Q1

REPORT INFORMATION
  Report Type: Report from Study
  Country: BR (occurrence: BR)
  Receive Date: 20130228
  Receipt Date: 20130228
  Transmission Date: 20140127
  Serious: Yes (Hospitalization, Other)
  Sender: FDA-Public Use
  Company Number: BR-ABBOTT-13P-020-1048747-00

PATIENT
  Sex: Female
  Weight: 52 kg

DRUGS (11)
  1. HUMIRA [Suspect]
     Indication: RHEUMATOID ARTHRITIS
     Route: 058
     Dates: start: 201107, end: 201211
  2. HUMIRA [Suspect]
     Dates: start: 2012
  3. HUMIRA [Suspect]
     Route: 058
     Dates: start: 201301
  4. ARADOIS [Concomitant]
     Indication: BLOOD PRESSURE
     Route: 048
     Dates: start: 2011
  5. PREDNISONE [Concomitant]
     Indication: RHEUMATOID ARTHRITIS
     Dosage: EVENTUALLY
     Route: 048
     Dates: start: 2011
  6. CORTICOID [Concomitant]
     Indication: RHEUMATOID ARTHRITIS
     Dosage: SPRAY; 20 ML DAILY
     Route: 048
     Dates: start: 2011
  7. RALOXIFENE [Concomitant]
     Indication: RHEUMATOID ARTHRITIS
     Route: 048
     Dates: start: 2011
  8. CALCIUM [Concomitant]
     Indication: PRODUCT USED FOR UNKNOWN INDICATION
  9. CALCITRIOL [Concomitant]
     Indication: PRODUCT USED FOR UNKNOWN INDICATION
  10. CITALOPRAM [Concomitant]
     Indication: PRODUCT USED FOR UNKNOWN INDICATION
  11. NSAID^S [Concomitant]
     Indication: PRODUCT USED FOR UNKNOWN INDICATION

REACTIONS (3)
  - Immunosuppression [Recovered/Resolved]
  - Pneumonia [Recovered/Resolved]
  - Pulmonary fibrosis [Recovered/Resolved]
